FAERS Safety Report 6649472-2 (Version None)
Quarter: 2010Q1

REPORT INFORMATION
  Report Type: 
  Country: None (occurrence: None)
  Receive Date: 20100324
  Receipt Date: 20100319
  Transmission Date: 20100710
  Serious: Yes (Death)
  Sender: FDA-Public Use
  Company Number: US-GILEAD-2010-0027961

PATIENT
  Sex: Female
  Weight: 67.3 kg

DRUGS (14)
  1. LETAIRIS [Suspect]
     Indication: PULMONARY ARTERIAL HYPERTENSION
     Route: 048
     Dates: start: 20090803
  2. REVATIO [Concomitant]
     Indication: PULMONARY ARTERIAL HYPERTENSION
  3. BABY ASPIRIN [Concomitant]
  4. DILTIAZEM HCL [Concomitant]
  5. VENTOLIN HFA [Concomitant]
  6. SOL-MEDROL [Concomitant]
  7. SYMBICORT [Concomitant]
  8. SYNTHROID [Concomitant]
  9. LEVAQUIN [Concomitant]
  10. ZYVOX [Concomitant]
  11. ZOCOR [Concomitant]
  12. VITAMIN B-12 [Concomitant]
  13. CALCIUM +D [Concomitant]
  14. VITAMIN D [Concomitant]

REACTIONS (1)
  - DEATH [None]
